FAERS Safety Report 5912111-X (Version None)
Quarter: 2008Q4

REPORT INFORMATION
  Report Type: 
  Country: None (occurrence: None)
  Receive Date: 20081007
  Receipt Date: 20081007
  Transmission Date: 20090506
  Serious: No
  Sender: FDA-Public Use
  Company Number: None

PATIENT
  Sex: Male
  Weight: 105.5974 kg

DRUGS (2)
  1. BUPROPION HCL [Suspect]
     Indication: ANXIETY
     Dosage: 150 MG QD PO
     Route: 048
     Dates: start: 20080602
  2. BUPROPION HCL [Suspect]
     Indication: DEPRESSION
     Dosage: 150 MG QD PO
     Route: 048
     Dates: start: 20080602

REACTIONS (3)
  - ANXIETY [None]
  - FEELING ABNORMAL [None]
  - MALAISE [None]
